FAERS Safety Report 24786308 (Version 1)
Quarter: 2024Q4

REPORT INFORMATION
  Report Type: Report from Study
  Country: US (occurrence: US)
  Receive Date: 20241229
  Receipt Date: 20241229
  Transmission Date: 20250115
  Serious: No
  Sender: ACADIA PHARMACEUTICALS
  Company Number: US-ACADIA PHARMACEUTICALS INC.-ACA-2024-TRF-008769

PATIENT
  Sex: Female

DRUGS (2)
  1. DAYBUE [Suspect]
     Active Substance: TROFINETIDE
     Dosage: UNKNOWN
     Route: 065
  2. DAYBUE [Suspect]
     Active Substance: TROFINETIDE
     Dosage: UNKNOWN
     Route: 065

REACTIONS (3)
  - Viral infection [Unknown]
  - Inappropriate schedule of product administration [Unknown]
  - Diarrhoea [Recovered/Resolved]
